FAERS Safety Report 25263386 (Version 1)
Quarter: 2025Q2

REPORT INFORMATION
  Report Type: Spontaneous
  Country: DE (occurrence: DE)
  Receive Date: 20250502
  Receipt Date: 20250502
  Transmission Date: 20250716
  Serious: Yes (Congenital Anomaly, Other)
  Sender: ABBVIE
  Company Number: DE-EMB-M202109567-1

PATIENT
  Weight: 3.145 kg

DRUGS (1)
  1. CITALOPRAM [Suspect]
     Active Substance: CITALOPRAM
     Indication: Maternal exposure timing unspecified
     Route: 064

REACTIONS (3)
  - Hypospadias [Unknown]
  - Foetal exposure during pregnancy [Unknown]
  - Foetal heart rate deceleration abnormality [Unknown]
